FAERS Safety Report 9575199 (Version 1)
Quarter: 2013Q4

REPORT INFORMATION
  Report Type: Spontaneous
  Country: KR (occurrence: KR)
  Receive Date: 20131001
  Receipt Date: 20131001
  Transmission Date: 20140711
  Serious: Yes (Death, Other)
  Sender: FDA-Public Use
  Company Number: PHHY2013KR106713

PATIENT
  Age: 71 Year
  Sex: Male

DRUGS (2)
  1. METHYLPREDNISOLONE [Suspect]
     Dosage: 250 MG, UNK
     Route: 042
  2. PREDNISOLONE [Suspect]
     Dosage: 60 MG, UNK
     Route: 048

REACTIONS (3)
  - Procedural complication [Fatal]
  - Oedema peripheral [Unknown]
  - Drug effect incomplete [Unknown]
